FAERS Safety Report 9268947 (Version 2)
Quarter: 2014Q2

REPORT INFORMATION
  Report Type: Report from Study
  Country: FR (occurrence: FR)
  Receive Date: 20130503
  Receipt Date: 20140619
  Transmission Date: 20141212
  Serious: Yes (Hospitalization)
  Sender: FDA-Public Use
  Company Number: FR-ROCHE-1118243

PATIENT
  Sex: Male
  Weight: 89 kg

DRUGS (10)
  1. MYCOPHENOLATE MOFETIL [Suspect]
     Indication: RENAL TRANSPLANT
     Dosage: INCONSISTENCY OF CESSATION DATE.
     Route: 048
     Dates: start: 20120823
  2. METHYLPREDNISOLONE [Suspect]
     Indication: RENAL TRANSPLANT
     Route: 048
     Dates: start: 20120829
  3. CALCIPARIN [Suspect]
     Indication: DEEP VEIN THROMBOSIS
     Route: 065
  4. PREVISCAN (FRANCE) [Suspect]
     Indication: DEEP VEIN THROMBOSIS
     Route: 048
     Dates: start: 20120903, end: 20120905
  5. PREVISCAN (FRANCE) [Suspect]
     Route: 048
     Dates: start: 20120906, end: 20120907
  6. SOLUPRED (FRANCE) [Suspect]
     Indication: RENAL TRANSPLANT
     Route: 048
     Dates: start: 20120829
  7. SOLUPRED (FRANCE) [Suspect]
     Route: 048
     Dates: start: 20120829
  8. EVEROLIMUS [Suspect]
     Indication: RENAL TRANSPLANT
     Route: 048
     Dates: start: 20120826
  9. EVEROLIMUS [Suspect]
     Route: 065
     Dates: end: 20121011
  10. NEORAL [Suspect]
     Indication: RENAL TRANSPLANT
     Route: 048
     Dates: start: 20121011

REACTIONS (8)
  - Deep vein thrombosis [Recovered/Resolved]
  - Incision site haematoma [Recovered/Resolved]
  - Septic shock [Recovered/Resolved]
  - Enterococcal sepsis [Recovered/Resolved]
  - Urinary tract infection enterococcal [Recovered/Resolved]
  - Urinary tract disorder [Recovered/Resolved]
  - Anastomotic complication [Recovered/Resolved]
  - Hyperkalaemia [Recovered/Resolved]
